FAERS Safety Report 10051052 (Version 1)
Quarter: 2014Q2

REPORT INFORMATION
  Report Type: Spontaneous
  Country: US (occurrence: US)
  Receive Date: 20140401
  Receipt Date: 20140401
  Transmission Date: 20141212
  Serious: No
  Sender: FDA-Public Use
  Company Number: US-TARO-2013P1018795

PATIENT
  Sex: Female

DRUGS (1)
  1. MICONAZOLE NITRATE VAGINAL CREAM 4% 3 DAY CREAM [Suspect]
     Indication: FUNGAL INFECTION

REACTIONS (1)
  - Drug ineffective [Not Recovered/Not Resolved]
